FAERS Safety Report 9282209 (Version 1)
Quarter: 2013Q2

REPORT INFORMATION
  Report Type: Spontaneous
  Country: US (occurrence: US)
  Receive Date: 20130510
  Receipt Date: 20130510
  Transmission Date: 20140414
  Serious: No
  Sender: FDA-Public Use
  Company Number: US-PFIZER INC-2013142173

PATIENT
  Age: 64 Year
  Sex: Male
  Weight: 95.24 kg

DRUGS (13)
  1. AVINZA [Suspect]
     Indication: FIBROMYALGIA
     Dosage: 120 MG, 1X/DAY
     Dates: start: 2010, end: 201305
  2. LYRICA [Suspect]
     Indication: FIBROMYALGIA
     Dosage: 150 MG ONE CAPSULE IN MORNING AND 150MG TWO CAPSULE AT NIGHT
  3. PERCOCET [Suspect]
     Indication: ARTHRITIS
     Dosage: 10/325 MG, 4X/DAY
  4. PERCOCET [Suspect]
     Indication: FIBROMYALGIA
  5. FENOFIBRATE [Concomitant]
     Dosage: 145 MG, UNK
  6. BABY ASPIRIN [Concomitant]
     Indication: ANTICOAGULANT THERAPY
     Dosage: 81 MG DAILY
  7. VITAMIN D [Concomitant]
     Dosage: 50000 IU, WEEKLY
  8. CLOPIDOGREL [Concomitant]
     Indication: ANTICOAGULANT THERAPY
     Dosage: 75 MG, UNK
  9. SAVELLA [Concomitant]
     Indication: ARTHRITIS
     Dosage: 50 MG, UNK
  10. ALLOPURINOL [Concomitant]
     Indication: GOUT
     Dosage: 300 MG, 2X/DAY
  11. GLIPIZIDE [Concomitant]
     Indication: DIABETES MELLITUS
     Dosage: ^2.5-500MG^ , UNK
  12. CRESTOR [Concomitant]
     Indication: BLOOD CHOLESTEROL ABNORMAL
     Dosage: 20 MG, UNK
  13. LEVOTHYROXINE [Concomitant]
     Indication: THYROID DISORDER
     Dosage: 0.2 MG, UNK

REACTIONS (2)
  - Pain in extremity [Unknown]
  - Gait disturbance [Unknown]
